FAERS Safety Report 5238933-9 (Version None)
Quarter: 2007Q1

REPORT INFORMATION
  Report Type: 
  Country: None (occurrence: None)
  Receive Date: 20070215
  Receipt Date: 20070207
  Transmission Date: 20070707
  Serious: Yes (Other)
  Sender: FDA-Public Use
  Company Number: FR-PFIZER INC-2007010884

PATIENT
  Sex: Male

DRUGS (9)
  1. AMLOR [Suspect]
     Indication: HYPERTENSION
     Dosage: DAILY DOSE:5MG
     Route: 048
  2. AMLOR [Suspect]
     Dosage: DAILY DOSE:10MG
     Route: 048
  3. AMLOR [Suspect]
     Dosage: DAILY DOSE:5MG
     Route: 048
  4. AMLOR [Suspect]
     Route: 048
  5. AMLOR [Suspect]
     Dosage: DAILY DOSE:5MG
     Route: 048
  6. ALDACTAZINE [Suspect]
  7. DOXAZOSIN MESYLATE [Suspect]
  8. PREVISCAN [Concomitant]
  9. PHYSIOTENS [Concomitant]

REACTIONS (6)
  - ASTHMA [None]
  - BRONCHITIS [None]
  - HYPERTENSION [None]
  - OEDEMA PERIPHERAL [None]
  - RESPIRATORY DISORDER [None]
  - UNEVALUABLE EVENT [None]
